FAERS Safety Report 8358455-6 (Version None)
Quarter: 2012Q2

REPORT INFORMATION
  Report Type: 
  Country: None (occurrence: None)
  Receive Date: 20120514
  Receipt Date: 20110825
  Transmission Date: 20120825
  Serious: No
  Sender: FDA-Public Use
  Company Number: US-TEVA-2011004481

PATIENT
  Sex: Female
  Weight: 101.7 kg

DRUGS (14)
  1. NUVIGIL [Suspect]
     Indication: NARCOLEPSY
     Dosage: 250 MILLIGRAM;
     Route: 048
     Dates: start: 20100101
  2. LIPITOR [Concomitant]
     Dates: start: 20110201
  3. METFORMIN HCL [Concomitant]
     Dates: start: 20090101
  4. BAYER ASA [Concomitant]
  5. FLUOXETINE [Concomitant]
     Dates: start: 20010101
  6. CALCIUM WITH VITAMIN D [Concomitant]
  7. POTASSIUM HCL [Concomitant]
     Dates: start: 20090101
  8. LASIX [Concomitant]
     Dates: start: 20090101
  9. ABILIFY [Concomitant]
     Dates: start: 20100101
  10. TRAZODONE HCL [Concomitant]
     Dates: start: 20110501
  11. NEURONTIN [Concomitant]
  12. TOPAMAX [Concomitant]
     Dates: start: 20070101
  13. NEXIUM [Concomitant]
  14. MORPHINE SULFATE [Concomitant]
     Dates: start: 20060101

REACTIONS (2)
  - DRUG INEFFECTIVE [None]
  - FATIGUE [None]
